FAERS Safety Report 7589266-7 (Version None)
Quarter: 2011Q3

REPORT INFORMATION
  Report Type: 
  Country: None (occurrence: None)
  Receive Date: 20110705
  Receipt Date: 20110624
  Transmission Date: 20111222
  Serious: Yes (Death, Hospitalization, Other)
  Sender: FDA-Public Use
  Company Number: US-BAXTER-500589

PATIENT
  Sex: Female

DRUGS (3)
  1. GAMMAGARD [Suspect]
     Indication: HYPOGAMMAGLOBULINAEMIA
     Dosage: .
     Route: 065
     Dates: start: 19930101
  2. MOTRIN [Suspect]
     Indication: PRODUCT USED FOR UNKNOWN INDICATION
     Route: 065
     Dates: start: 20090101
  3. NON-STEROIDAL ANTI-INFAMMATORY DRUGS [Suspect]
     Indication: PRODUCT USED FOR UNKNOWN INDICATION
     Route: 065
     Dates: start: 20090101

REACTIONS (14)
  - CARDIO-RESPIRATORY ARREST [None]
  - VARICES OESOPHAGEAL [None]
  - SEPSIS [None]
  - ASCITES [None]
  - HEPATIC CIRRHOSIS [None]
  - GASTROINTESTINAL HAEMORRHAGE [None]
  - CHRONIC HEPATIC FAILURE [None]
  - IMMUNODEFICIENCY [None]
  - RENAL FAILURE ACUTE [None]
  - MALNUTRITION [None]
  - ACUTE RESPIRATORY FAILURE [None]
  - HEPATITIS C [None]
  - CACHEXIA [None]
  - DYSPNOEA [None]
